FAERS Safety Report 23366084 (Version 1)
Quarter: 2024Q1

REPORT INFORMATION
  Report Type: Spontaneous
  Country: FR (occurrence: None)
  Receive Date: 20240104
  Receipt Date: 20240104
  Transmission Date: 20240410
  Serious: Yes (Other)
  Sender: FDA-Public Use
  Company Number: 2023A294044

PATIENT
  Age: 3 Month
  Sex: Male
  Weight: 7.2 kg

DRUGS (4)
  1. PULMICORT TURBUHALER [Suspect]
     Active Substance: BUDESONIDE
     Indication: Asthma
     Route: 055
  2. FLUTICASONE PROPIONATE [Suspect]
     Active Substance: FLUTICASONE PROPIONATE
     Indication: Asthma
     Dosage: 250UG/INHAL DAILY
     Dates: end: 20230925
  3. ALBUTEROL [Concomitant]
     Active Substance: ALBUTEROL
  4. CELESTENE [Concomitant]

REACTIONS (1)
  - Abnormal weight gain [Recovering/Resolving]

NARRATIVE: CASE EVENT DATE: 20230306
